FAERS Safety Report 14837322 (Version 3)
Quarter: 2018Q2

REPORT INFORMATION
  Report Type: Report from Study
  Country: None (occurrence: US)
  Receive Date: 20180502
  Receipt Date: 20180618
  Transmission Date: 20180711
  Serious: Yes (Other)
  Sender: FDA-Public Use
  Company Number: US-ABBVIE-18K-163-2336976-00

PATIENT
  Age: 35 Year
  Sex: Male
  Weight: 83.99 kg

DRUGS (2)
  1. AZATHIOPRINE. [Concomitant]
     Active Substance: AZATHIOPRINE
     Indication: COLITIS ULCERATIVE
  2. HUMIRA [Suspect]
     Active Substance: ADALIMUMAB
     Indication: COLITIS ULCERATIVE
     Route: 058
     Dates: start: 2016, end: 20180326

REACTIONS (6)
  - Deafness unilateral [Recovering/Resolving]
  - Facial paralysis [Recovered/Resolved]
  - Head injury [Unknown]
  - Balance disorder [Recovering/Resolving]
  - Injection site extravasation [Unknown]
  - Eyelid function disorder [Recovering/Resolving]

NARRATIVE: CASE EVENT DATE: 201803
